FAERS Safety Report 6556147-7 (Version None)
Quarter: 2010Q1

REPORT INFORMATION
  Report Type: 
  Country: None (occurrence: None)
  Receive Date: 20100128
  Receipt Date: 20090623
  Transmission Date: 20100710
  Serious: Yes (Other)
  Sender: FDA-Public Use
  Company Number: US-TEVA-194606USA

PATIENT
  Sex: Male

DRUGS (19)
  1. COPAXONE [Suspect]
     Indication: MULTIPLE SCLEROSIS
     Route: 058
  2. TYLOX [Concomitant]
  3. BUPROPION [Concomitant]
  4. CALCIUM [Concomitant]
  5. CETIRIZINE HYDROCHLORIDE [Concomitant]
  6. CYANOCOBALAMIN [Concomitant]
  7. ERGOCALCIFEROL [Concomitant]
  8. LIDOCAINE [Concomitant]
  9. METHADONE [Concomitant]
  10. METOPROLOL [Concomitant]
  11. MODAFINIL [Concomitant]
  12. OXYCODONE [Concomitant]
  13. PANTOPRAZOLE [Concomitant]
  14. PREGABALIN [Concomitant]
  15. SILDENAFIL [Concomitant]
  16. MORNIFLUMATE [Concomitant]
  17. TOLTERODINE TARTRATE [Concomitant]
  18. TOPIRAMATE [Concomitant]
  19. VENLAFAXINE [Concomitant]

REACTIONS (1)
  - HYPERSENSITIVITY [None]
